FAERS Safety Report 23354717 (Version 9)
Quarter: 2024Q4

REPORT INFORMATION
  Report Type: Spontaneous
  Country: JP (occurrence: JP)
  Receive Date: 20240101
  Receipt Date: 20241225
  Transmission Date: 20250114
  Serious: Yes (Death, Life-Threatening, Hospitalization, Other)
  Sender: ALEXION PHARMACEUTICALS
  Company Number: 2023A285241

PATIENT
  Age: 82 Year
  Weight: 63 kg

DRUGS (25)
  1. IMFINZI [Suspect]
     Active Substance: DURVALUMAB
     Indication: Hepatocellular carcinoma
     Dosage: 1500 MILLIGRAM, UNK, FREQUENCY: Q4WK
  2. IMJUDO [Suspect]
     Active Substance: TREMELIMUMAB\TREMELIMUMAB-ACTL
     Indication: Hepatocellular carcinoma
     Dosage: 300 MILLIGRAM, UNK
  3. HEPAACT [Concomitant]
     Dosage: AFTER EACH MEAL
  4. OLMESARTAN MEDOXOMIL [Concomitant]
     Active Substance: OLMESARTAN MEDOXOMIL
     Dosage: AFTER BREAKFAST
  5. AZELNIDIPINE [Concomitant]
     Active Substance: AZELNIDIPINE
     Dosage: AFTER BREAKFAST
  6. EPLERENONE [Concomitant]
     Active Substance: EPLERENONE
     Dosage: AFTER BREAKFAST
  7. DOXAZOSIN [Concomitant]
     Active Substance: DOXAZOSIN\DOXAZOSIN MESYLATE
     Dosage: AFTER DINNER
  8. MAGNESIUM OXIDE [Concomitant]
     Active Substance: MAGNESIUM OXIDE
     Indication: Constipation
     Dosage: 330 MILLIGRAM, TID
  9. MAGNESIUM OXIDE [Concomitant]
     Active Substance: MAGNESIUM OXIDE
     Dosage: AFTER EACH MEAL
  10. URSODIOL [Concomitant]
     Active Substance: URSODIOL
     Dosage: AFTER EACH MEAL
  11. VONOPRAZAN FUMARATE [Concomitant]
     Active Substance: VONOPRAZAN FUMARATE
  12. VONOPRAZAN FUMARATE [Concomitant]
     Active Substance: VONOPRAZAN FUMARATE
     Dosage: DOSE UNKNOWN
  13. VONOPRAZAN FUMARATE [Concomitant]
     Active Substance: VONOPRAZAN FUMARATE
     Dosage: DOSE UNKNOWN
  14. ESAXERENONE [Concomitant]
     Active Substance: ESAXERENONE
  15. ESAXERENONE [Concomitant]
     Active Substance: ESAXERENONE
     Dosage: DOSE UNKNOWN
  16. ESAXERENONE [Concomitant]
     Active Substance: ESAXERENONE
     Dosage: DOSE UNKNOWN
  17. TOPIROXOSTAT [Concomitant]
     Active Substance: TOPIROXOSTAT
  18. TOPIROXOSTAT [Concomitant]
     Active Substance: TOPIROXOSTAT
     Dosage: DOSE UNKNOWN
  19. TOPIROXOSTAT [Concomitant]
     Active Substance: TOPIROXOSTAT
     Dosage: DOSE UNKNOWN
  20. URSO [Concomitant]
     Active Substance: URSODIOL
     Indication: Cirrhosis alcoholic
     Dosage: AFTER EACH MEAL
  21. AMINO ACIDS, SOURCE UNSPECIFIED [Concomitant]
     Active Substance: AMINO ACIDS, SOURCE UNSPECIFIED
     Indication: Cirrhosis alcoholic
  22. AZELNIDIPINE\OLMESARTAN MEDOXOMIL [Concomitant]
     Active Substance: AZELNIDIPINE\OLMESARTAN MEDOXOMIL
     Dosage: DOSE UNKNOWN
  23. AZELNIDIPINE\OLMESARTAN MEDOXOMIL [Concomitant]
     Active Substance: AZELNIDIPINE\OLMESARTAN MEDOXOMIL
     Dosage: DOSE UNKNOWN
  24. CALBLOCK [Concomitant]
     Active Substance: AZELNIDIPINE
     Indication: Hypertension
     Dosage: AFTER BREAKFAST
  25. CARDENALIN [Concomitant]
     Active Substance: DOXAZOSIN MESYLATE
     Indication: Hypertension

REACTIONS (6)
  - Immune-mediated lung disease [Fatal]
  - Interstitial lung disease [Fatal]
  - Acute kidney injury [Recovering/Resolving]
  - Pleural effusion [Not Recovered/Not Resolved]
  - Immune-mediated enterocolitis [Recovering/Resolving]
  - Dehydration [Recovering/Resolving]
